FAERS Safety Report 9448666 (Version 1)
Quarter: 2013Q3

REPORT INFORMATION
  Report Type: Spontaneous
  Country: DE (occurrence: DE)
  Receive Date: 20130808
  Receipt Date: 20130808
  Transmission Date: 20140515
  Serious: Yes (Other)
  Sender: FDA-Public Use
  Company Number: DE-ROCHE-1258192

PATIENT
  Age: 77 Year
  Sex: Female

DRUGS (5)
  1. LUCENTIS [Suspect]
     Indication: AGE-RELATED MACULAR DEGENERATION
     Route: 050
     Dates: start: 201211
  2. LUCENTIS [Suspect]
     Route: 050
     Dates: start: 201212
  3. LUCENTIS [Suspect]
     Route: 050
     Dates: start: 201301, end: 201301
  4. EYLEA [Suspect]
     Indication: AGE-RELATED MACULAR DEGENERATION
     Route: 065
     Dates: start: 201304
  5. EYLEA [Suspect]
     Route: 065
     Dates: start: 201305

REACTIONS (4)
  - Retinal pigment epithelial tear [Recovered/Resolved]
  - Detachment of retinal pigment epithelium [Recovered/Resolved]
  - Retinal oedema [Unknown]
  - Visual acuity reduced [Unknown]
